FAERS Safety Report 7200254 (Version 5)
Quarter: 2018Q3

REPORT INFORMATION
  Report Type: Report from Study
  Country: JP (occurrence: JP)
  Receive Date: 20091204
  Receipt Date: 20180903
  Transmission Date: 20181010
  Serious: Yes (Other)
  Sender: FDA-Public Use
  Company Number: PHHY2009JP39945

PATIENT
  Age: 75 Year
  Sex: Male

DRUGS (18)
  1. SPRYCEL [Concomitant]
     Active Substance: DASATINIB
     Indication: CHRONIC MYELOID LEUKAEMIA
     Dosage: 100 MG, QD
     Route: 048
     Dates: start: 20090617, end: 20090707
  2. TASIGNA [Suspect]
     Active Substance: NILOTINIB
     Route: 048
     Dates: start: 20090818, end: 20091001
  3. TASIGNA [Suspect]
     Active Substance: NILOTINIB
     Indication: CHRONIC MYELOID LEUKAEMIA
     Dosage: 400 MG, QD
     Route: 048
     Dates: start: 20090731, end: 20090809
  4. TASIGNA [Suspect]
     Active Substance: NILOTINIB
     Route: 048
     Dates: start: 20090815, end: 20090817
  5. TASIGNA [Suspect]
     Active Substance: NILOTINIB
     Route: 048
     Dates: start: 20091127, end: 20100107
  6. TASIGNA [Suspect]
     Active Substance: NILOTINIB
     Route: 048
     Dates: start: 20100108, end: 20100121
  7. TASIGNA [Suspect]
     Active Substance: NILOTINIB
     Route: 048
     Dates: start: 20091029, end: 20091126
  8. TASIGNA [Suspect]
     Active Substance: NILOTINIB
     Route: 048
     Dates: start: 20100122, end: 20100204
  9. OLMETEC [Concomitant]
     Active Substance: OLMESARTAN MEDOXOMIL
     Indication: RENAL IMPAIRMENT
     Dosage: 10 MG, DAILY
     Route: 048
     Dates: start: 20090714
  10. BONALON [Concomitant]
     Active Substance: ALENDRONATE SODIUM
     Indication: PRODUCT USED FOR UNKNOWN INDICATION
     Dosage: 35 MG, QD
     Route: 048
     Dates: start: 20100819
  11. TASIGNA [Suspect]
     Active Substance: NILOTINIB
     Dosage: 400 MG, BID
     Route: 048
     Dates: start: 20100205
  12. TASIGNA [Suspect]
     Active Substance: NILOTINIB
     Route: 048
     Dates: start: 20090810, end: 20090813
  13. CALCIUM POLYSTYRENE SULFONATE [Concomitant]
     Active Substance: CALCIUM POLYSTYRENE SULFONATE
     Indication: PRODUCT USED FOR UNKNOWN INDICATION
     Dosage: 50 G, QD
     Route: 048
     Dates: start: 20091029
  14. MUCOSTA [Concomitant]
     Active Substance: REBAMIPIDE
     Indication: PRODUCT USED FOR UNKNOWN INDICATION
     Dosage: 200 MG, QD
     Route: 048
     Dates: start: 20090821
  15. PREDONINE [Concomitant]
     Active Substance: PREDNISOLONE
     Indication: PRODUCT USED FOR UNKNOWN INDICATION
     Dosage: 15 MG, QD
     Route: 048
     Dates: start: 20100204
  16. LASIX [Concomitant]
     Active Substance: FUROSEMIDE
     Indication: PRODUCT USED FOR UNKNOWN INDICATION
     Dosage: 10 MG, QD
     Route: 048
     Dates: start: 20090615, end: 20100317
  17. AMLODIN [Concomitant]
     Active Substance: AMLODIPINE BESYLATE
     Indication: PRODUCT USED FOR UNKNOWN INDICATION
     Dosage: 2.5 MG, UNK
     Route: 048
     Dates: start: 20120607
  18. PREDNISOLONE. [Concomitant]
     Active Substance: PREDNISOLONE
     Indication: PRODUCT USED FOR UNKNOWN INDICATION
     Dosage: 2 MG, UNK
     Route: 048

REACTIONS (13)
  - Pruritus [Recovered/Resolved]
  - Blood creatinine increased [Not Recovered/Not Resolved]
  - Alanine aminotransferase increased [Recovered/Resolved]
  - Blood potassium increased [Recovering/Resolving]
  - Blood urea increased [Not Recovered/Not Resolved]
  - Rash papular [Recovered/Resolved]
  - Gamma-glutamyltransferase increased [Not Recovered/Not Resolved]
  - Alanine aminotransferase increased [Recovered/Resolved]
  - Rash papular [Recovered/Resolved]
  - Gynaecomastia [Recovered/Resolved]
  - Blood phosphorus decreased [Recovered/Resolved]
  - Blood bilirubin increased [Not Recovered/Not Resolved]
  - Hyperglycaemia [Not Recovered/Not Resolved]

NARRATIVE: CASE EVENT DATE: 20090813
